FAERS Safety Report 7747136-5 (Version None)
Quarter: 2011Q3

REPORT INFORMATION
  Report Type: 
  Country: None (occurrence: None)
  Receive Date: 20110907
  Receipt Date: 20110824
  Transmission Date: 20111222
  Serious: Yes (Other)
  Sender: FDA-Public Use
  Company Number: TPA2011A04633

PATIENT
  Age: 71 Year
  Sex: Male
  Weight: 123.832 kg

DRUGS (12)
  1. VICODIN ES (PARAETAMOL, HYDROCODONE BITARTRATE) [Concomitant]
  2. GLYBURIDE [Concomitant]
  3. TRAMADOL HCL [Concomitant]
  4. ASCORBIC ACID [Concomitant]
  5. XALATAN [Concomitant]
  6. CRESTOR [Concomitant]
  7. HUMALOG [Concomitant]
  8. ACTOS [Suspect]
     Indication: TYPE 2 DIABETES MELLITUS
     Dosage: 30 MG, 1 IN 1 D, PER ORAL
     Route: 048
     Dates: start: 20031001, end: 20110616
  9. LOTENSIN (BENAZEPRIL HDYROCHLORIDE) [Concomitant]
  10. FLOMAX [Concomitant]
  11. METFORMIN HCL [Concomitant]
  12. MULTIVITAMIN (ASCORBIC ACID, PYRIDOXINE HYDROCHLORIDE, THIAMINE HYDROC [Concomitant]

REACTIONS (1)
  - BLADDER CANCER [None]
